FAERS Safety Report 10431707 (Version 1)
Quarter: 2014Q3

REPORT INFORMATION
  Report Type: Spontaneous
  Country: BR (occurrence: None)
  Receive Date: 20140903
  Receipt Date: 20140903
  Transmission Date: 20150326
  Serious: Yes (Life-Threatening)
  Sender: FDA-Public Use
  Company Number: FK201403382

PATIENT
  Age: 42 Year
  Sex: Female

DRUGS (3)
  1. CAFFEINE CITRATE (MANUFACTURER UNKNOWN) (CAFFEINE CITRATE) (CAFFEINE CITRATE) [Suspect]
     Active Substance: CAFFEINE CITRATE
     Indication: HEADACHE
     Dosage: 0.45
     Route: 048
  2. ISOMETHEPTENE [Suspect]
     Active Substance: ISOMETHEPTENE
     Indication: HEADACHE
  3. DIPYRONE (METAMIZOLE SODIUM) [Concomitant]
     Active Substance: DIPYRONE

REACTIONS (6)
  - Drug abuse [None]
  - Artery dissection [None]
  - Putamen haemorrhage [None]
  - Cerebral vasoconstriction [None]
  - Hemiparesis [None]
  - Dysarthria [None]
